FAERS Safety Report 8302235-4 (Version None)
Quarter: 2012Q2

REPORT INFORMATION
  Report Type: 
  Country: None (occurrence: None)
  Receive Date: 20120418
  Receipt Date: 20120418
  Transmission Date: 20120825
  Serious: Yes (Hospitalization)
  Sender: FDA-Public Use
  Company Number: None

PATIENT
  Sex: Female
  Weight: 67.9 kg

DRUGS (2)
  1. TRETINOIN [Suspect]
     Dosage: 560 MG
     Dates: end: 20111016
  2. DAUNORUBICIN HCL [Suspect]
     Dosage: 66 MG
     Dates: end: 20111012

REACTIONS (2)
  - NEUTROPHIL COUNT DECREASED [None]
  - PYREXIA [None]
